FAERS Safety Report 4698998-X (Version None)
Quarter: 2005Q2

REPORT INFORMATION
  Report Type: 
  Country: None (occurrence: None)
  Receive Date: 20050622
  Receipt Date: 20050622
  Transmission Date: 20051028
  Serious: Yes (Death, Hospitalization)
  Sender: FDA-Public Use
  Company Number: None

PATIENT
  Age: 59 Year
  Sex: Male
  Weight: 62.1428 kg

DRUGS (2)
  1. COREG [Suspect]
     Indication: MYOCARDIAL INFARCTION
     Dosage: 1 A DAY DAILY
     Route: 065
     Dates: start: 19921023, end: 20050414
  2. ENALAPRIL 2.5MG WATSON [Suspect]
     Indication: MYOCARDIAL INFARCTION
     Dosage: 3 PER DAY DAILY
     Route: 065
     Dates: start: 19921023, end: 20050414

REACTIONS (2)
  - CARDIAC FAILURE [None]
  - STAPHYLOCOCCAL INFECTION [None]
